FAERS Safety Report 8620240-5 (Version None)
Quarter: 2012Q3

REPORT INFORMATION
  Report Type: 
  Country: None (occurrence: None)
  Receive Date: 20120824
  Receipt Date: 20120821
  Transmission Date: 20120928
  Serious: Yes (Hospitalization, Other)
  Sender: FDA-Public Use
  Company Number: PHEH2012US014774

PATIENT
  Sex: Male

DRUGS (3)
  1. METOPROLOL TARTRATE [Suspect]
     Dosage: UNK UKN, UNK
  2. LOPRESSOR [Suspect]
     Indication: HYPERTENSION
     Dosage: UNK UKN, UNK
  3. NORVASC [Suspect]
     Dosage: UNK UKN, UNK

REACTIONS (3)
  - DRUG INEFFECTIVE [None]
  - HEADACHE [None]
  - RECTAL HAEMORRHAGE [None]
